FAERS Safety Report 4746361-5 (Version None)
Quarter: 2005Q3

REPORT INFORMATION
  Report Type: 
  Country: None (occurrence: None)
  Receive Date: 20050815
  Receipt Date: 20050802
  Transmission Date: 20060218
  Serious: Yes (Hospitalization)
  Sender: FDA-Public Use
  Company Number: 2003023390

PATIENT
  Sex: Male

DRUGS (2)
  1. VIAGRA [Suspect]
     Indication: ILL-DEFINED DISORDER
     Dosage: 200 MG (4 IN 1 D)
     Dates: start: 20011203
  2. VIAGRA [Suspect]
     Indication: PULMONARY HYPERTENSION
     Dosage: 200 MG (4 IN 1 D)
     Dates: start: 20011203

REACTIONS (8)
  - CYANOPSIA [None]
  - FLUID RETENTION [None]
  - GASTRITIS EROSIVE [None]
  - GASTROOESOPHAGEAL REFLUX DISEASE [None]
  - HAEMATEMESIS [None]
  - LOWER RESPIRATORY TRACT INFECTION [None]
  - MEDICATION ERROR [None]
  - PNEUMONIA [None]
